FAERS Safety Report 12503207 (Version 1)
Quarter: 2016Q2

REPORT INFORMATION
  Report Type: Report from Study
  Country: US (occurrence: US)
  Receive Date: 20160628
  Receipt Date: 20160628
  Transmission Date: 20160815
  Serious: Yes (Other)
  Sender: FDA-Public Use
  Company Number: US-ABBVIE-16K-163-1614196-00

PATIENT
  Age: 12 Year
  Sex: Male

DRUGS (2)
  1. HUMIRA [Suspect]
     Active Substance: ADALIMUMAB
     Indication: CROHN^S DISEASE
     Dosage: DAY ONE
     Route: 058
     Dates: start: 20160408, end: 20160408
  2. HUMIRA [Suspect]
     Active Substance: ADALIMUMAB
     Dosage: DAY ONE
     Route: 058
     Dates: start: 20160610, end: 20160610

REACTIONS (9)
  - Activities of daily living impaired [Unknown]
  - Diarrhoea [Unknown]
  - Post procedural complication [Unknown]
  - Middle insomnia [Unknown]
  - Diarrhoea haemorrhagic [Recovering/Resolving]
  - Intestinal resection [Unknown]
  - Decreased appetite [Recovering/Resolving]
  - Abdominal pain [Unknown]
  - Insomnia [Not Recovered/Not Resolved]

NARRATIVE: CASE EVENT DATE: 2016
